FAERS Safety Report 7677053 (Version 3)
Quarter: 2012Q4

REPORT INFORMATION
  Report Type: 
  Country: NL (occurrence: NL)
  Receive Date: 20101119
  Receipt Date: 20120829
  Transmission Date: 20130627
  Serious: Yes (Other)
  Sender: FDA-Public Use
  Company Number: NL-GILEAD-2010-0033279

PATIENT
  Age: 53 Year
  Sex: Male

DRUGS (19)
  1. VIREAD [Suspect]
     Indication: HIV INFECTION
     Dosage: UNK
     Dates: start: 20031117
  2. VIREAD [Suspect]
     Dosage: UNK
     Dates: start: 20050705
  3. VIREAD [Suspect]
     Dosage: UNK
     Dates: start: 20070524
  4. VIREAD [Suspect]
     Dosage: UNK, QD
     Dates: start: 20080923, end: 20081014
  5. VIREAD [Suspect]
     Dosage: 300 mg, QD
     Dates: start: 200309
  6. VIREAD [Suspect]
     Dosage: 300 mg, QOD
     Dates: start: 2008, end: 2008
  7. DIDANOSINE [Concomitant]
     Indication: HIV INFECTION
     Dosage: UNK
     Dates: start: 19970307
  8. DIDANOSINE [Concomitant]
     Dosage: 250 mg, QD
     Dates: start: 200309
  9. DIDANOSINE [Concomitant]
     Dosage: UNK
     Dates: start: 20031117
  10. DIDANOSINE [Concomitant]
     Dosage: UNK
     Dates: start: 20050705
  11. DIDANOSINE [Concomitant]
     Dosage: UNK
     Dates: start: 20070524
  12. DIDANOSINE [Concomitant]
     Dosage: UNK
     Dates: start: 20080923
  13. LOPINAVIR W/RITONAVIR [Concomitant]
     Indication: HIV INFECTION
     Dosage: UNK UNK, BID
     Dates: start: 200309
  14. LOPINAVIR W/RITONAVIR [Concomitant]
     Dosage: 1 DF, UNK
     Dates: start: 20031117
  15. LOPINAVIR W/RITONAVIR [Concomitant]
     Dosage: UNK
     Dates: start: 20070524
  16. LOPINAVIR W/RITONAVIR [Concomitant]
     Dosage: UNK
     Dates: start: 20080923
  17. LOPINAVIR W/RITONAVIR [Concomitant]
     Dosage: UNK
     Dates: start: 20081028
  18. AZT [Concomitant]
     Dosage: UNK
     Dates: start: 20050705
  19. RALTEGRAVIR [Concomitant]
     Dosage: UNK
     Dates: start: 20081028

REACTIONS (3)
  - CD4 lymphocytes decreased [Recovered/Resolved]
  - Osteomalacia [Recovered/Resolved]
  - Fanconi syndrome acquired [Recovered/Resolved]
